FAERS Safety Report 9359305 (Version 3)
Quarter: 2013Q3

REPORT INFORMATION
  Report Type: Spontaneous
  Country: US (occurrence: US)
  Receive Date: 20130620
  Receipt Date: 20130830
  Transmission Date: 20140515
  Serious: Yes (Disabling)
  Sender: FDA-Public Use
  Company Number: CHPA2013US009847

PATIENT
  Age: 75 Year
  Sex: Female

DRUGS (3)
  1. VOLTAREN GEL [Suspect]
     Indication: ARTHRITIS
     Dosage: UNK, 1-2 TIMES PRN
     Route: 061
  2. THERA-GESIC [Concomitant]
     Indication: PAIN
  3. WARFARIN [Concomitant]

REACTIONS (6)
  - Arthritis [Not Recovered/Not Resolved]
  - Pain [Unknown]
  - Back disorder [Not Recovered/Not Resolved]
  - Wrong technique in drug usage process [Unknown]
  - Therapeutic response unexpected [Unknown]
  - Underdose [Unknown]
